FAERS Safety Report 9645048 (Version 2)
Quarter: 2013Q4

REPORT INFORMATION
  Report Type: Report from Study
  Country: GB (occurrence: GB)
  Receive Date: 20131025
  Receipt Date: 20131025
  Transmission Date: 20140711
  Serious: Yes (Other)
  Sender: FDA-Public Use
  Company Number: GB-JNJFOC-20130909986

PATIENT
  Age: 54 Year
  Sex: Female
  Weight: 101.5 kg

DRUGS (25)
  1. GOLIMUMAB [Suspect]
     Indication: RHEUMATOID ARTHRITIS
     Route: 058
     Dates: start: 20130827
  2. GOLIMUMAB [Suspect]
     Indication: RHEUMATOID ARTHRITIS
     Route: 058
     Dates: start: 201305
  3. AMLODIPINE [Suspect]
     Indication: CHEST PAIN
     Route: 065
  4. BISOPROLOL [Suspect]
     Indication: CHEST PAIN
     Route: 065
  5. LAXIDO [Concomitant]
     Route: 048
  6. METHOTREXATE [Concomitant]
     Route: 065
  7. ATORVASTATIN [Concomitant]
     Route: 065
  8. CLOPIDOGREL [Concomitant]
     Route: 065
  9. FOLIC ACID [Concomitant]
     Dosage: I TABLET DAILY EXCEPT ON METHOTREXATE DAY
     Route: 065
  10. ISOTARD [Concomitant]
     Route: 065
  11. LANSOPRAZOLE [Concomitant]
     Route: 065
  12. SALBUTAMOL [Concomitant]
     Dosage: 100 MICROGRAMS /PUFF
     Route: 065
  13. TRAMADOL [Concomitant]
     Route: 065
  14. HYDROCORTISONE [Concomitant]
     Indication: MOUTH ULCERATION
     Route: 002
  15. AMITRIPTYLINE [Concomitant]
     Route: 065
  16. BENZYDAMINE [Concomitant]
     Route: 065
  17. KETOCONAZOLE [Concomitant]
     Route: 065
  18. ATORVASTATIN [Concomitant]
     Route: 065
  19. GLYCERYL TRINITRATE [Concomitant]
     Dosage: 400 MICROGRAMS/DOSE
     Route: 065
  20. GLANDOSANE [Concomitant]
     Dosage: 400 MICROGRAMS/DOSE
     Route: 065
  21. ISOTARD [Concomitant]
     Route: 065
  22. FUROSEMIDE [Concomitant]
     Route: 065
  23. PARACETAMOL [Concomitant]
     Indication: PAIN
     Route: 065
  24. CLARITHROMYCIN [Concomitant]
     Route: 065
  25. SENNA [Concomitant]
     Indication: CONSTIPATION
     Route: 065

REACTIONS (4)
  - Oedema peripheral [Not Recovered/Not Resolved]
  - Chest pain [Unknown]
  - Orthopnoea [Unknown]
  - Dyspnoea [Not Recovered/Not Resolved]
